FAERS Safety Report 8388380-6 (Version None)
Quarter: 2012Q2

REPORT INFORMATION
  Report Type: 
  Country: None (occurrence: None)
  Receive Date: 20120525
  Receipt Date: 20120514
  Transmission Date: 20120825
  Serious: Yes (Hospitalization)
  Sender: FDA-Public Use
  Company Number: AT-ELI_LILLY_AND_COMPANY-AT201205005576

PATIENT
  Age: 40 Year
  Sex: Male

DRUGS (5)
  1. OLANZAPINE [Suspect]
     Dosage: 10 MG, QD
     Route: 065
     Dates: start: 20110401, end: 20120101
  2. PANTOPRAZOLE [Concomitant]
     Dosage: UNK, QD
     Dates: start: 20100101
  3. TOLVON [Concomitant]
     Dosage: UNK, QD
     Dates: start: 20110401, end: 20120101
  4. ASPIRIN [Concomitant]
     Dosage: UNK, QD
     Dates: start: 20100101
  5. RAMIPRIL [Concomitant]
     Dosage: UNK UNK, QD
     Dates: start: 20100101

REACTIONS (2)
  - HOSPITALISATION [None]
  - WEIGHT INCREASED [None]
